FAERS Safety Report 8066302-5 (Version None)
Quarter: 2012Q1

REPORT INFORMATION
  Report Type: 
  Country: None (occurrence: None)
  Receive Date: 20120124
  Receipt Date: 20111231
  Transmission Date: 20120608
  Serious: Yes (Other)
  Sender: FDA-Public Use
  Company Number: FR-ROCHE-1032586

PATIENT
  Sex: Female

DRUGS (4)
  1. FORADIL [Concomitant]
     Dates: start: 20070111
  2. XOLAIR [Suspect]
     Indication: ASTHMA
     Dates: start: 20110921
  3. EBASTINE [Concomitant]
     Dates: start: 20080114
  4. MIFLONIL [Concomitant]
     Dates: start: 20070111

REACTIONS (2)
  - DYSPNOEA [None]
  - ASTHMA [None]
